FAERS Safety Report 6356259-7 (Version None)
Quarter: 2009Q3

REPORT INFORMATION
  Report Type: 
  Country: None (occurrence: None)
  Receive Date: 20090915
  Receipt Date: 20090902
  Transmission Date: 20100115
  Serious: Yes (Other)
  Sender: FDA-Public Use
  Company Number: US-TYCO HEALTHCARE/MALLINCKRODT-T200901651

PATIENT

DRUGS (2)
  1. OCTREOSCAN [Suspect]
     Dosage: UNK
  2. INDIUM (111 IN) [Suspect]
     Dosage: 60 MCI, UNK

REACTIONS (1)
  - EMBOLISM [None]
